FAERS Safety Report 6539613-X (Version None)
Quarter: 2010Q1

REPORT INFORMATION
  Report Type: 
  Country: None (occurrence: None)
  Receive Date: 20100115
  Receipt Date: 20100104
  Transmission Date: 20100710
  Serious: Yes (Death)
  Sender: FDA-Public Use
  Company Number: US-PFIZER INC-2010001566

PATIENT
  Age: 56 Year
  Sex: Female

DRUGS (4)
  1. AMLODIPINE BESYLATE AND ATORVASTATIN CALCIUM [Suspect]
     Dosage: UNK
     Route: 048
  2. METFORMIN HCL [Suspect]
     Dosage: UNK
     Route: 048
  3. OLMESARTAN MEDOXOMIL [Suspect]
     Dosage: UNK
     Route: 048
  4. FLUOXETINE [Suspect]
     Dosage: UNK
     Route: 048

REACTIONS (1)
  - COMPLETED SUICIDE [None]
